FAERS Safety Report 25522525 (Version 9)
Quarter: 2025Q4

REPORT INFORMATION
  Report Type: Spontaneous
  Country: US (occurrence: US)
  Receive Date: 20250707
  Receipt Date: 20251218
  Transmission Date: 20260117
  Serious: Yes (Death, Hospitalization, Other)
  Sender: CSL BEHRING
  Company Number: US-BEH-2025211095

PATIENT
  Age: 94 Year
  Sex: Female
  Weight: 96 kg

DRUGS (52)
  1. PRIVIGEN [Suspect]
     Active Substance: HUMAN IMMUNOGLOBULIN G
     Indication: Hypogammaglobulinaemia
     Route: 065
  2. PRIVIGEN [Suspect]
     Active Substance: HUMAN IMMUNOGLOBULIN G
     Dosage: 15 G, QW
     Route: 065
  3. PRIVIGEN [Suspect]
     Active Substance: HUMAN IMMUNOGLOBULIN G
     Dosage: 15 G, QMT
     Route: 042
     Dates: start: 20240129
  4. PRIVIGEN [Suspect]
     Active Substance: HUMAN IMMUNOGLOBULIN G
     Dosage: 15 G, QMT
     Route: 042
     Dates: start: 20250125
  5. PRIVIGEN [Suspect]
     Active Substance: HUMAN IMMUNOGLOBULIN G
     Dosage: 15 G, QMT
     Route: 042
     Dates: start: 20241119
  6. PRIVIGEN [Suspect]
     Active Substance: HUMAN IMMUNOGLOBULIN G
     Dosage: 10 G
     Route: 042
     Dates: start: 20250114
  7. PRIVIGEN [Suspect]
     Active Substance: HUMAN IMMUNOGLOBULIN G
     Dosage: 5 G
     Route: 042
     Dates: start: 20250114
  8. PRIVIGEN [Suspect]
     Active Substance: HUMAN IMMUNOGLOBULIN G
     Dosage: 10 G
     Route: 042
     Dates: start: 20250211
  9. PRIVIGEN [Suspect]
     Active Substance: HUMAN IMMUNOGLOBULIN G
     Dosage: 5 G
     Route: 042
     Dates: start: 20250211
  10. PRIVIGEN [Suspect]
     Active Substance: HUMAN IMMUNOGLOBULIN G
     Dosage: 10 G
     Route: 042
     Dates: start: 20250311
  11. PRIVIGEN [Suspect]
     Active Substance: HUMAN IMMUNOGLOBULIN G
     Dosage: 5 G
     Route: 042
     Dates: start: 20250311
  12. PRIVIGEN [Suspect]
     Active Substance: HUMAN IMMUNOGLOBULIN G
     Dosage: 5 G
     Route: 042
  13. PRIVIGEN [Suspect]
     Active Substance: HUMAN IMMUNOGLOBULIN G
     Dosage: 15 G
     Route: 065
  14. PRIVIGEN [Suspect]
     Active Substance: HUMAN IMMUNOGLOBULIN G
     Dosage: 5 G
     Route: 065
  15. PRIVIGEN [Suspect]
     Active Substance: HUMAN IMMUNOGLOBULIN G
     Dosage: 15 G
     Route: 065
  16. SYNTHROID [Concomitant]
     Active Substance: LEVOTHYROXINE SODIUM
     Indication: Hypothyroidism
     Dosage: UNK
     Dates: start: 1985
  17. SYNTHROID [Concomitant]
     Active Substance: LEVOTHYROXINE SODIUM
     Dosage: 625 MCG, QD
     Route: 048
     Dates: start: 20250216
  18. SYNTHROID [Concomitant]
     Active Substance: LEVOTHYROXINE SODIUM
     Dosage: 825 MCG, QD
     Route: 048
     Dates: start: 20250218
  19. SYNTHROID [Concomitant]
     Active Substance: LEVOTHYROXINE SODIUM
     Dosage: SASHI
     Route: 042
     Dates: start: 20250206
  20. SYNTHROID [Concomitant]
     Active Substance: LEVOTHYROXINE SODIUM
     Dosage: 50 MG, QD
     Route: 048
     Dates: start: 2022
  21. SODIUM CHLORIDE [Concomitant]
     Active Substance: SODIUM CHLORIDE
     Dosage: SASH
     Route: 042
     Dates: start: 20240216
  22. SODIUM CHLORIDE [Concomitant]
     Active Substance: SODIUM CHLORIDE
     Dosage: 2 TABLET PRN
     Route: 042
     Dates: start: 20211217
  23. SODIUM CHLORIDE [Concomitant]
     Active Substance: SODIUM CHLORIDE
     Dosage: UNK
  24. SODIUM CHLORIDE [Concomitant]
     Active Substance: SODIUM CHLORIDE
     Dosage: 250 ML, PRN
     Route: 042
     Dates: start: 20211217
  25. PLAVIX [Concomitant]
     Active Substance: CLOPIDOGREL BISULFATE
     Dosage: 37.5 MG, QOD
     Route: 048
     Dates: start: 20240216
  26. METOPROLOL TARTRATE [Concomitant]
     Active Substance: METOPROLOL TARTRATE
     Dosage: 12.5 MG, BID
     Route: 048
     Dates: start: 20240216
  27. METOPROLOL TARTRATE [Concomitant]
     Active Substance: METOPROLOL TARTRATE
     Dosage: 12.5 MG, BID
     Route: 048
     Dates: start: 2022
  28. EPINEPHRINE [Concomitant]
     Active Substance: EPINEPHRINE
     Dosage: 1 MG, PRN
     Route: 030
     Dates: start: 20240821, end: 20250124
  29. IVERMECTIN [Concomitant]
     Active Substance: IVERMECTIN
     Dosage: 3 MG, QW
     Route: 048
     Dates: start: 20241211
  30. IVERMECTIN [Concomitant]
     Active Substance: IVERMECTIN
     Dosage: UNK
     Route: 048
     Dates: start: 2021
  31. GLUTATHIONE [Concomitant]
     Active Substance: GLUTATHIONE
     Dosage: 1 DROP DAILY FOR EACH EYE FOR 14 DAYS
     Route: 042
     Dates: start: 20241211
  32. GLUTATHIONE [Concomitant]
     Active Substance: GLUTATHIONE
     Dosage: 1 DRP, QD
     Route: 061
     Dates: start: 20241211
  33. GLUTATHIONE [Concomitant]
     Active Substance: GLUTATHIONE
     Dosage: 1 DROP EACH EYE, QD
     Route: 061
     Dates: start: 2021
  34. LYSINE [Concomitant]
     Active Substance: LYSINE
     Dosage: UNK, QD
     Dates: start: 20241211
  35. LYSINE [Concomitant]
     Active Substance: LYSINE
     Dosage: 5 G, QD
     Route: 048
     Dates: start: 20241119
  36. PROLINE [Concomitant]
     Active Substance: PROLINE
     Dosage: 3 G, QD
     Dates: start: 20201211
  37. PROLINE [Concomitant]
     Active Substance: PROLINE
     Dosage: 3 G, QD
     Route: 048
     Dates: start: 20241119
  38. METOPROLOL [Concomitant]
     Active Substance: METOPROLOL
     Dosage: 12.5 MG, BID
     Route: 048
  39. VITAMIN C [Concomitant]
     Active Substance: ASCORBIC ACID
     Dosage: 5 G, QD
     Route: 048
     Dates: start: 20241119
  40. VITAMIN C [Concomitant]
     Active Substance: ASCORBIC ACID
     Dosage: ONE, QD
     Route: 048
     Dates: start: 2021
  41. LARAZOTIDE [Concomitant]
     Dosage: 0.5 MG, QD
     Route: 048
     Dates: start: 20241217
  42. LARAZOTIDE [Concomitant]
     Dosage: 0.5, BID
     Route: 048
     Dates: start: 20250103
  43. ACETAMINOPHEN [Concomitant]
     Active Substance: ACETAMINOPHEN
     Dosage: 500 MG
     Route: 048
  44. ACETAMINOPHEN [Concomitant]
     Active Substance: ACETAMINOPHEN
     Dosage: 650 MG
     Route: 048
  45. ACETAMINOPHEN [Concomitant]
     Active Substance: ACETAMINOPHEN
     Dosage: 350 MG
     Route: 048
  46. ACETAMINOPHEN [Concomitant]
     Active Substance: ACETAMINOPHEN
     Dosage: 325 MG
     Route: 048
  47. BENADRYL [Concomitant]
     Active Substance: DIPHENHYDRAMINE HYDROCHLORIDE
     Dosage: 25 MG
     Route: 048
  48. BENADRYL [Concomitant]
     Active Substance: DIPHENHYDRAMINE HYDROCHLORIDE
     Dosage: 25 MG
     Route: 048
  49. DIPHENHYDRAMINE HYDROCHLORIDE [Concomitant]
     Active Substance: DIPHENHYDRAMINE HYDROCHLORIDE
     Dosage: 25 MG
  50. DIPHENHYDRAMINE HYDROCHLORIDE [Concomitant]
     Active Substance: DIPHENHYDRAMINE HYDROCHLORIDE
     Dosage: 25 MG
  51. APAP [Concomitant]
     Active Substance: ACETAMINOPHEN
     Dosage: 650 MG
  52. SOLU-MEDROL [Concomitant]
     Active Substance: METHYLPREDNISOLONE SODIUM SUCCINATE
     Dosage: 125 MG, PRN
     Route: 042
     Dates: start: 20240821, end: 20250124

REACTIONS (26)
  - Thrombotic cerebral infarction [Fatal]
  - Ischaemic stroke [Fatal]
  - Atrial fibrillation [Fatal]
  - Coronary artery disease [Fatal]
  - Confusional state [Fatal]
  - Amnesia [Fatal]
  - Hypoacusis [Fatal]
  - Visual impairment [Fatal]
  - Diplopia [Fatal]
  - Cough [Fatal]
  - Oedema [Fatal]
  - Asthenia [Fatal]
  - Gait disturbance [Fatal]
  - Depression [Fatal]
  - Aphasia [Fatal]
  - Cerebrovascular accident [Fatal]
  - Anxiety [Fatal]
  - Paralysis [Fatal]
  - Dyspnoea [Fatal]
  - Aphasia [Fatal]
  - Dementia [Unknown]
  - Infusion site pruritus [Unknown]
  - Infusion site extravasation [Unknown]
  - Off label use [Unknown]
  - Incorrect dose administered [Unknown]
  - Product administration error [Unknown]

NARRATIVE: CASE EVENT DATE: 20250311
